FAERS Safety Report 9118143 (Version 4)
Quarter: 2013Q1

REPORT INFORMATION
  Report Type: Spontaneous
  Country: JP (occurrence: JP)
  Receive Date: 20130226
  Receipt Date: 20130321
  Transmission Date: 20140127
  Serious: Yes (Death)
  Sender: FDA-Public Use
  Company Number: JP-AMGEN-JPNSP2013012357

PATIENT
  Age: 56 Year
  Sex: Male
  Weight: 62 kg

DRUGS (24)
  1. VECTIBIX [Suspect]
     Indication: COLON CANCER
     Dosage: 400 MG, UNK
     Route: 041
     Dates: start: 20120530, end: 20120530
  2. VECTIBIX [Suspect]
     Dosage: 400 MG, Q2WK
     Route: 041
     Dates: start: 20120622, end: 20121123
  3. VECTIBIX [Suspect]
     Dosage: 400 MG, UNK
     Route: 041
     Dates: start: 20121214, end: 20121214
  4. ELPLAT [Suspect]
     Indication: COLON CANCER
     Dosage: 150 MG, Q2WK
     Route: 041
     Dates: start: 20080704, end: 20080912
  5. ELPLAT [Suspect]
     Dosage: 140 MG, Q2WK
     Route: 041
     Dates: start: 20080926, end: 20090327
  6. ELPLAT [Suspect]
     Dosage: 90 MG, UNK
     Route: 041
     Dates: start: 20090410, end: 20110318
  7. ELPLAT [Suspect]
     Dosage: 150 MG, Q2WK
     Route: 041
     Dates: start: 20120530, end: 20121214
  8. FLUOROURACIL [Concomitant]
     Indication: COLON CANCER
     Dosage: UNK
     Route: 042
     Dates: start: 20080704
  9. FLUOROURACIL [Concomitant]
     Dosage: UNK
     Route: 042
     Dates: start: 20120530, end: 20121214
  10. CALCIUM LEVOFOLINATE [Concomitant]
     Indication: COLON CANCER
     Dosage: UNK
     Route: 041
     Dates: start: 20080704
  11. CALCIUM LEVOFOLINATE [Concomitant]
     Dosage: UNK
     Route: 041
     Dates: start: 20120530, end: 20121214
  12. ALOXI [Concomitant]
     Dosage: UNK
     Route: 042
  13. DECADRON                           /00016002/ [Concomitant]
     Dosage: UNK
     Route: 042
  14. CHLOR-TRIMETON [Concomitant]
     Dosage: UNK
     Route: 042
  15. BONOTEO [Concomitant]
     Dosage: UNK
     Route: 048
  16. BEZATOL SR [Concomitant]
     Dosage: UNK
     Route: 048
  17. PROTECADIN [Concomitant]
     Dosage: UNK
     Route: 048
  18. MINOMYCIN [Concomitant]
     Dosage: UNK
     Route: 048
  19. LAC-B GRANULAR POWDER N [Concomitant]
     Dosage: UNK
     Route: 048
  20. WARFARIN [Concomitant]
     Dosage: UNK
     Route: 048
  21. MICARDIS [Concomitant]
     Dosage: UNK
     Route: 048
  22. FUROSEMIDE [Concomitant]
     Dosage: UNK
     Route: 048
  23. GOSHAJINKIGAN [Concomitant]
     Dosage: UNK
     Route: 048
  24. ZETIA [Concomitant]
     Dosage: UNK
     Route: 048

REACTIONS (2)
  - Interstitial lung disease [Fatal]
  - Jugular vein thrombosis [Not Recovered/Not Resolved]
